FAERS Safety Report 11928926 (Version 1)
Quarter: 2016Q1

REPORT INFORMATION
  Report Type: Spontaneous
  Country: CA (occurrence: CA)
  Receive Date: 20160120
  Receipt Date: 20160120
  Transmission Date: 20160526
  Serious: Yes (Other)
  Sender: FDA-Public Use
  Company Number: CA-ROCHE-1696678

PATIENT
  Sex: Female

DRUGS (6)
  1. DICETEL [Concomitant]
     Active Substance: PINAVERIUM BROMIDE
  2. PREDNISONE. [Concomitant]
     Active Substance: PREDNISONE
  3. ZOPICLONE [Concomitant]
     Active Substance: ZOPICLONE
  4. XOLAIR [Suspect]
     Active Substance: OMALIZUMAB
     Indication: ASTHMA
     Route: 058
  5. TECTA [Concomitant]
     Active Substance: PANTOPRAZOLE MAGNESIUM
  6. QVAR [Concomitant]
     Active Substance: BECLOMETHASONE DIPROPIONATE

REACTIONS (3)
  - Malaise [Unknown]
  - Influenza [Unknown]
  - Lower respiratory tract infection [Unknown]

NARRATIVE: CASE EVENT DATE: 2015
